FAERS Safety Report 10436296 (Version 1)
Quarter: 2014Q3

REPORT INFORMATION
  Report Type: Spontaneous
  Country: US (occurrence: None)
  Receive Date: 20140904
  Receipt Date: 20140904
  Transmission Date: 20150326
  Serious: No
  Sender: FDA-Public Use
  Company Number: 2515444-2014-00010

PATIENT
  Sex: Male

DRUGS (1)
  1. BANANA BOAT (AVOBENZONE\OCTOCRYLENE\OXYBENZONE) [Suspect]
     Active Substance: AVOBENZONE\OCTOCRYLENE\OXYBENZONE
     Indication: PROPHYLAXIS AGAINST SOLAR RADIATION
     Dosage: TOPICAL, NO DOSE LIMITS
     Route: 061
     Dates: start: 20140811

REACTIONS (4)
  - Wound secretion [None]
  - Dermatitis contact [None]
  - Chemical injury [None]
  - Sunburn [None]

NARRATIVE: CASE EVENT DATE: 20140811
